FAERS Safety Report 24339349 (Version 2)
Quarter: 2024Q4

REPORT INFORMATION
  Report Type: Spontaneous
  Country: CN (occurrence: CN)
  Receive Date: 20240919
  Receipt Date: 20241001
  Transmission Date: 20250115
  Serious: Yes (Disabling, Other)
  Sender: ALCON
  Company Number: CN-ALCON LABORATORIES-ALC2024CN004201

PATIENT
  Age: 41 Year
  Sex: Male

DRUGS (1)
  1. ALCAINE [Suspect]
     Active Substance: PROPARACAINE HYDROCHLORIDE
     Indication: Eye pain
     Dosage: UNK, 10 TIMES/DAY
     Route: 047

REACTIONS (4)
  - Intentional product misuse [Unknown]
  - Ulcerative keratitis [Unknown]
  - Dry eye [Unknown]
  - Product storage error [Unknown]
